APPROVED DRUG PRODUCT: FLUMAZENIL
Active Ingredient: FLUMAZENIL
Strength: 1MG/10ML (0.1MG/ML)
Dosage Form/Route: INJECTABLE;INJECTION
Application: A078527 | Product #002 | TE Code: AP
Applicant: HIKMA FARMACEUTICA (PORTUGAL) SA
Approved: Mar 23, 2009 | RLD: No | RS: Yes | Type: RX